FAERS Safety Report 4388868-9 (Version None)
Quarter: 2004Q2

REPORT INFORMATION
  Report Type: 
  Country: None (occurrence: None)
  Receive Date: 20040624
  Receipt Date: 20040609
  Transmission Date: 20050107
  Serious: Yes (Hospitalization)
  Sender: FDA-Public Use
  Company Number: DE9199710OCT2002

PATIENT
  Age: 32 Year
  Sex: Male

DRUGS (5)
  1. RAPAMUNE [Suspect]
     Indication: LUNG TRANSPLANT
     Dosage: SEE IMAGE
     Route: 048
     Dates: start: 20020920, end: 20020920
  2. RAPAMUNE [Suspect]
     Indication: LUNG TRANSPLANT
     Dosage: SEE IMAGE
     Route: 048
     Dates: start: 20020921, end: 20021001
  3. TACROLIMUS (TACROLIMUS) [Concomitant]
  4. PREDNISOLONE [Concomitant]
  5. METHYLPREDNISOLONE [Concomitant]

REACTIONS (6)
  - IMPAIRED HEALING [None]
  - LUNG TRANSPLANT REJECTION [None]
  - OPPORTUNISTIC INFECTION [None]
  - PULMONARY NECROSIS [None]
  - RESPIRATORY DISORDER [None]
  - WOUND DEHISCENCE [None]
